FAERS Safety Report 8477667-4 (Version None)
Quarter: 2012Q2

REPORT INFORMATION
  Report Type: 
  Country: None (occurrence: None)
  Receive Date: 20120629
  Receipt Date: 20120622
  Transmission Date: 20120825
  Serious: Yes (Other)
  Sender: FDA-Public Use
  Company Number: GB-B.I. PHARMACEUTICALS,INC./RIDGEFIELD-2012-UK-00828UK

PATIENT
  Age: 85 Year
  Sex: Male
  Weight: 64 kg

DRUGS (2)
  1. PRADAXA [Suspect]
     Indication: ATRIAL FIBRILLATION
     Dosage: 300 MG
     Route: 048
     Dates: start: 20120523, end: 20120528
  2. CETIRIZINE [Concomitant]
     Dosage: 10 MG
     Dates: start: 20120201

REACTIONS (3)
  - CONTUSION [None]
  - JOINT SWELLING [None]
  - DIARRHOEA [None]
